FAERS Safety Report 7956414-6 (Version None)
Quarter: 2011Q4

REPORT INFORMATION
  Report Type: 
  Country: None (occurrence: None)
  Receive Date: 20111205
  Receipt Date: 20111123
  Transmission Date: 20120403
  Serious: Yes (Other)
  Sender: FDA-Public Use
  Company Number: ZA-JNJFOC-20111107546

PATIENT
  Sex: Female

DRUGS (3)
  1. REVELLEX [Suspect]
     Indication: JUVENILE ARTHRITIS
     Dosage: PATIENT'S FIRST INFUSION AND THE INFUSION RATE WAS 40ML/HR
     Route: 042
     Dates: start: 20111116
  2. ARAVA [Suspect]
     Indication: PRODUCT USED FOR UNKNOWN INDICATION
     Route: 065
  3. CORTISONE ACETATE [Suspect]
     Indication: PRODUCT USED FOR UNKNOWN INDICATION
     Route: 065

REACTIONS (7)
  - HEADACHE [None]
  - INFUSION RELATED REACTION [None]
  - ERYTHEMA [None]
  - OROPHARYNGEAL PAIN [None]
  - PYREXIA [None]
  - ARTHRALGIA [None]
  - TENDONITIS [None]
